FAERS Safety Report 6005708-2 (Version None)
Quarter: 2008Q4

REPORT INFORMATION
  Report Type: 
  Country: None (occurrence: None)
  Receive Date: 20081217
  Receipt Date: 20081212
  Transmission Date: 20090506
  Serious: Yes (Hospitalization)
  Sender: FDA-Public Use
  Company Number: FR-AVENTIS-200814364FR

PATIENT
  Age: 52 Year
  Sex: Male

DRUGS (2)
  1. BIRODOGYL [Suspect]
     Indication: ABSCESS
     Route: 048
     Dates: start: 20080315
  2. ACETAMINOPHEN AND CODEINE PHOSPHATE [Concomitant]
     Indication: ABSCESS
     Route: 048
     Dates: start: 20080315

REACTIONS (2)
  - CYTOLYTIC HEPATITIS [None]
  - HEPATOCELLULAR INJURY [None]
